FAERS Safety Report 21916200 (Version 1)
Quarter: 2023Q1

REPORT INFORMATION
  Report Type: Spontaneous
  Country: US (occurrence: US)
  Receive Date: 20230126
  Receipt Date: 20230126
  Transmission Date: 20230417
  Serious: No
  Sender: FDA-Public Use
  Company Number: US-TAKEDA-2023TUS008853

PATIENT

DRUGS (1)
  1. MOTEGRITY [Suspect]
     Active Substance: PRUCALOPRIDE SUCCINATE
     Indication: Product used for unknown indication
     Route: 065

REACTIONS (5)
  - Inability to afford medication [Unknown]
  - Product use issue [Unknown]
  - Inappropriate schedule of product administration [Unknown]
  - Insurance issue [Unknown]
  - No adverse event [Unknown]
